FAERS Safety Report 7684400-2 (Version None)
Quarter: 2011Q3

REPORT INFORMATION
  Report Type: 
  Country: None (occurrence: None)
  Receive Date: 20110816
  Receipt Date: 20110808
  Transmission Date: 20111222
  Serious: Yes (Hospitalization)
  Sender: FDA-Public Use
  Company Number: US-BIOGENIDEC-2011BI026114

PATIENT
  Sex: Male

DRUGS (2)
  1. AVONEX [Suspect]
     Indication: MULTIPLE SCLEROSIS
     Route: 030
     Dates: start: 20100731
  2. AVONEX [Suspect]
     Route: 030
     Dates: end: 20100312

REACTIONS (5)
  - DISORIENTATION [None]
  - DYSPNOEA [None]
  - CARDIAC DISORDER [None]
  - BLOOD POTASSIUM DECREASED [None]
  - CHEST PAIN [None]
